FAERS Safety Report 19786019 (Version 1)
Quarter: 2021Q3

REPORT INFORMATION
  Report Type: Spontaneous
  Country: DE (occurrence: DE)
  Receive Date: 20210903
  Receipt Date: 20210903
  Transmission Date: 20211014
  Serious: Yes (Other)
  Sender: FDA-Public Use
  Company Number: DE-TEVA-2021-DE-1947712

PATIENT
  Age: 58 Year
  Sex: Male
  Weight: 70.8 kg

DRUGS (3)
  1. CALCIUMFOLINAT 1000/100 HEXAL INJEKTIONS LOSUNG [Suspect]
     Active Substance: LEUCOVORIN CALCIUM
     Indication: PANCREATIC CARCINOMA
     Dosage: 510MG ABS.; ADDITIONAL INFO: PZN 01527703
     Route: 042
     Dates: start: 20210802
  2. OXALIPLATIN?GRY 5MG/ML KONZENTRAT ZUR HERSTELLUNG EINER INFUSIONSLOSUN [Suspect]
     Active Substance: OXALIPLATIN
     Indication: PANCREATIC CARCINOMA
     Dosage: 108MG ABS.; ADDITIONAL INFO: PZN 01129233
     Route: 042
     Dates: start: 20210802
  3. IRINOMEDAC 20 MG/ML KONZENTRAT ZUR HERSTELLUNG EINER INFUSIONSLOSUNG [Concomitant]
     Indication: PANCREATIC CARCINOMA
     Dosage: 229 MG ABS.; ADDITIONAL INFO: PZN 01162414
     Route: 042
     Dates: start: 20210802

REACTIONS (5)
  - Anaphylactic reaction [Recovered/Resolved]
  - Pruritus [Recovered/Resolved]
  - Dizziness [Recovered/Resolved]
  - Visual impairment [Recovered/Resolved]
  - Cardiovascular disorder [Recovered/Resolved]

NARRATIVE: CASE EVENT DATE: 20210802
